FAERS Safety Report 8879175 (Version 1)
Quarter: 2012Q4

REPORT INFORMATION
  Report Type: Spontaneous
  Country: US (occurrence: None)
  Receive Date: 20121102
  Receipt Date: 20121102
  Transmission Date: 20130627
  Serious: Yes (Other)
  Sender: FDA-Public Use
  Company Number: None

PATIENT
  Age: 42 Year
  Sex: Female
  Weight: 79.38 kg

DRUGS (1)
  1. SOLU-MEDROL [Suspect]
     Indication: SEASONAL ALLERGY
     Dosage: once
     Dates: start: 20120730, end: 20120730

REACTIONS (2)
  - White blood cell count increased [None]
  - Product quality issue [None]
